FAERS Safety Report 6402419-6 (Version None)
Quarter: 2009Q4

REPORT INFORMATION
  Report Type: 
  Country: None (occurrence: None)
  Receive Date: 20091013
  Receipt Date: 20090929
  Transmission Date: 20100525
  Serious: Yes (Other)
  Sender: FDA-Public Use
  Company Number: 8052819

PATIENT
  Age: 23 Year
  Sex: Female
  Weight: 44.1 kg

DRUGS (5)
  1. CERTOLIZUMAB PEGOL [Suspect]
     Indication: CROHN'S DISEASE
     Dosage: 400 MG 1/2W SC
     Route: 058
     Dates: start: 20090828
  2. PLACEBO [Suspect]
     Indication: CROHN'S DISEASE
     Dosage: 400 MG 1/2W SC
     Route: 058
     Dates: start: 20090828
  3. PREDNISONE [Concomitant]
  4. TRAMADOL HCL [Concomitant]
  5. FOLIC ACID [Concomitant]

REACTIONS (4)
  - BACK PAIN [None]
  - BLOOD URINE PRESENT [None]
  - CHEST PAIN [None]
  - PANCREATITIS [None]
